FAERS Safety Report 18968919 (Version 2)
Quarter: 2022Q1

REPORT INFORMATION
  Report Type: Report from Study
  Country: BR (occurrence: BR)
  Receive Date: 20210304
  Receipt Date: 20220120
  Transmission Date: 20220423
  Serious: Yes (Other)
  Sender: FDA-Public Use
  Company Number: BR-NOVARTISPH-NVSC2021BR045349

PATIENT
  Age: 78 Year
  Sex: Male

DRUGS (5)
  1. COSENTYX [Suspect]
     Active Substance: SECUKINUMAB
     Indication: Psoriasis
     Dosage: 300 MG, QMO
     Route: 065
     Dates: start: 20201104
  2. COSENTYX [Suspect]
     Active Substance: SECUKINUMAB
     Dosage: UNK
     Route: 065
     Dates: start: 20210103
  3. COSENTYX [Suspect]
     Active Substance: SECUKINUMAB
     Dosage: UNK(SHOULD HAVE APPLIED ON 03 FEB 2021)
     Route: 065
     Dates: start: 20210127
  4. COSENTYX [Suspect]
     Active Substance: SECUKINUMAB
     Dosage: UNK
     Route: 065
     Dates: start: 20210227
  5. ADALIMUMAB [Suspect]
     Active Substance: ADALIMUMAB
     Indication: Psoriasis
     Dosage: 1 DOSAGE FORM (40 MG EVERY 15 DAYS)
     Route: 065

REACTIONS (7)
  - Skin haemorrhage [Recovered/Resolved]
  - Psoriasis [Recovered/Resolved]
  - Skin fissures [Recovered/Resolved]
  - Skin wrinkling [Unknown]
  - Pruritus [Unknown]
  - Therapeutic response shortened [Unknown]
  - Drug ineffective [Unknown]

NARRATIVE: CASE EVENT DATE: 20210124
